FAERS Safety Report 5844645-0 (Version None)
Quarter: 2008Q3

REPORT INFORMATION
  Report Type: 
  Country: None (occurrence: None)
  Receive Date: 20080812
  Receipt Date: 20080731
  Transmission Date: 20090109
  Serious: Yes (Life-Threatening, Hospitalization, Other)
  Sender: FDA-Public Use
  Company Number: 2008001825

PATIENT
  Age: 65 Year
  Sex: Male

DRUGS (9)
  1. ERLOTINIB (ERLOTINIB) (TABLET) (ERLOTINIB) [Suspect]
     Indication: LUNG ADENOCARCINOMA
     Dosage: 150 MG, QD, ORAL
     Route: 048
     Dates: start: 20080428, end: 20080507
  2. NOVAMIN (PROCHLORPERAZINE) [Concomitant]
  3. LOXONIN (LOXOPROFEN SODIUM) [Concomitant]
  4. FAMOTIDNE (FAMOTIDINE) [Concomitant]
  5. MUCODYNE (CARBOCISTEINE) [Concomitant]
  6. OXYCONTIN [Concomitant]
  7. MAGMITT [Concomitant]
  8. PRIMPERAN TAB [Concomitant]
  9. CLONAZEPAM [Concomitant]

REACTIONS (3)
  - DELIRIUM [None]
  - PNEUMONIA BACTERIAL [None]
  - RENAL IMPAIRMENT [None]
